FAERS Safety Report 23506797 (Version 1)
Quarter: 2024Q1

REPORT INFORMATION
  Report Type: Spontaneous
  Country: FI (occurrence: FI)
  Receive Date: 20240209
  Receipt Date: 20240209
  Transmission Date: 20240410
  Serious: Yes (Other)
  Sender: FDA-Public Use
  Company Number: None

PATIENT
  Age: 44 Year
  Sex: Female

DRUGS (2)
  1. NEURONTIN [Suspect]
     Active Substance: GABAPENTIN
     Indication: Neuralgia
     Dosage: QD (1-3 CAPSULE/DAY)
     Route: 048
     Dates: start: 20240122
  2. ACLOVIR [Concomitant]
     Indication: Herpes zoster
     Dosage: 800 MILLIGRAM, Q4H (EVERY 4 HOURS, FOR 7 DAYS)
     Route: 048
     Dates: start: 20240122

REACTIONS (6)
  - Drug dependence [Not Recovered/Not Resolved]
  - Balance disorder [Not Recovered/Not Resolved]
  - Disturbance in attention [Not Recovered/Not Resolved]
  - Feeling abnormal [Not Recovered/Not Resolved]
  - Pain [Not Recovered/Not Resolved]
  - Confusional state [Not Recovered/Not Resolved]

NARRATIVE: CASE EVENT DATE: 20240122
